FAERS Safety Report 6109053-6 (Version None)
Quarter: 2009Q1

REPORT INFORMATION
  Report Type: 
  Country: None (occurrence: None)
  Receive Date: 20090310
  Receipt Date: 20090303
  Transmission Date: 20090719
  Serious: Yes (Other)
  Sender: FDA-Public Use
  Company Number: US-ASTRAZENECA-2009UW05785

PATIENT
  Age: 76 Year
  Sex: Female
  Weight: 56.7 kg

DRUGS (8)
  1. NEXIUM [Suspect]
     Route: 048
  2. TOPROL-XL [Suspect]
     Indication: HYPERTENSION
     Route: 048
  3. HUMIRA [Concomitant]
  4. X-FORGE [Concomitant]
  5. VITAMIN D [Concomitant]
  6. ACTONEL [Concomitant]
  7. ASPIRIN [Concomitant]
  8. VYTORIN [Concomitant]

REACTIONS (1)
  - CARDIAC OPERATION [None]
